FAERS Safety Report 17262617 (Version 2)
Quarter: 2020Q1

REPORT INFORMATION
  Report Type: Spontaneous
  Country: US (occurrence: US)
  Receive Date: 20200113
  Receipt Date: 20200228
  Transmission Date: 20200409
  Serious: No
  Sender: FDA-Public Use
  Company Number: US-PFIZER INC-2020011104

PATIENT
  Age: 58 Year
  Sex: Female

DRUGS (1)
  1. ADVIL MIGRAINE [Suspect]
     Active Substance: IBUPROFEN
     Indication: MIGRAINE
     Dosage: TAKES 3 CAPSULES AT ONE TIME AND SOMETIME TAKEN AN ADDITIONAL 3 IN A DAY

REACTIONS (2)
  - Overdose [Unknown]
  - Drug ineffective [Unknown]
